FAERS Safety Report 17620128 (Version 2)
Quarter: 2020Q2

REPORT INFORMATION
  Report Type: Spontaneous
  Country: DE (occurrence: DE)
  Receive Date: 20200403
  Receipt Date: 20200423
  Transmission Date: 20200713
  Serious: Yes (Other)
  Sender: FDA-Public Use
  Company Number: DE-ROCHE-2573414

PATIENT
  Age: 48 Year
  Sex: Male

DRUGS (8)
  1. SIRDALUD [Concomitant]
     Active Substance: TIZANIDINE
     Route: 048
  2. OCREVUS [Suspect]
     Active Substance: OCRELIZUMAB
     Indication: MULTIPLE SCLEROSIS
     Route: 042
     Dates: start: 201811
  3. LISINOPRIL. [Concomitant]
     Active Substance: LISINOPRIL
     Route: 048
  4. BACLOFEN. [Concomitant]
     Active Substance: BACLOFEN
     Indication: MUSCLE SPASTICITY
     Route: 048
  5. FAMPYRA [Concomitant]
     Active Substance: DALFAMPRIDINE
     Route: 048
  6. SPASMOLYT [Concomitant]
     Active Substance: TROSPIUM CHLORIDE
     Route: 048
  7. PANTOZOLE [Concomitant]
     Active Substance: PANTOPRAZOLE SODIUM
     Route: 048
  8. OCREVUS [Suspect]
     Active Substance: OCRELIZUMAB
     Route: 042
     Dates: start: 201907

REACTIONS (4)
  - Herpes zoster [Recovered/Resolved with Sequelae]
  - Neuralgia [Recovered/Resolved with Sequelae]
  - Selective IgG subclass deficiency [Recovered/Resolved with Sequelae]
  - B-lymphocyte count decreased [Recovered/Resolved]

NARRATIVE: CASE EVENT DATE: 201911
